FAERS Safety Report 13931673 (Version 1)
Quarter: 2017Q3

REPORT INFORMATION
  Report Type: Spontaneous
  Country: US (occurrence: US)
  Receive Date: 20170904
  Receipt Date: 20170904
  Transmission Date: 20171127
  Serious: Yes (Other)
  Sender: FDA-Public Use
  Company Number: US-STRIDES ARCOLAB LIMITED-2017SP008947

PATIENT

DRUGS (2)
  1. METRONIDAZOLE. [Suspect]
     Active Substance: METRONIDAZOLE
     Indication: BACILLUS INFECTION
  2. METRONIDAZOLE. [Suspect]
     Active Substance: METRONIDAZOLE
     Indication: PELVIC ABSCESS
     Dosage: UNKNOWN (CUMULATIVE DOSE 25.5 GRAMS)
     Route: 065

REACTIONS (3)
  - Mental status changes [Recovered/Resolved]
  - Neurotoxicity [Recovered/Resolved]
  - Nervous system disorder [Recovered/Resolved]
